FAERS Safety Report 7635780-5 (Version None)
Quarter: 2011Q3

REPORT INFORMATION
  Report Type: 
  Country: None (occurrence: None)
  Receive Date: 20110726
  Receipt Date: 20110718
  Transmission Date: 20111222
  Serious: Yes (Other)
  Sender: FDA-Public Use
  Company Number: US-ASTRAZENECA-2011SE42689

PATIENT
  Age: 49 Year
  Sex: Female
  Weight: 81.6 kg

DRUGS (11)
  1. SEROQUEL XR [Suspect]
     Route: 048
  2. CYMBALTA [Concomitant]
  3. ELAVIL [Concomitant]
  4. ZANAFLEX [Concomitant]
  5. NEXIUM [Suspect]
     Route: 048
  6. OXYCONTIN [Concomitant]
  7. ZANTAC [Concomitant]
     Dosage: PRN
  8. PERCOCET [Concomitant]
     Dosage: PRN
  9. ZOCOR [Concomitant]
  10. ZOFRAN [Concomitant]
     Dosage: PRN
  11. LIDODERM [Concomitant]

REACTIONS (1)
  - BREAST CANCER [None]
